FAERS Safety Report 4573486-X (Version None)
Quarter: 2005Q1

REPORT INFORMATION
  Report Type: 
  Country: None (occurrence: None)
  Receive Date: 20050208
  Receipt Date: 20040827
  Transmission Date: 20050727
  Serious: No
  Sender: FDA-Public Use
  Company Number: US013331

PATIENT
  Sex: Female

DRUGS (3)
  1. PAXIL [Suspect]
     Indication: DRUG USE FOR UNKNOWN INDICATION
     Dosage: 40MG PER DAY
     Route: 048
  2. PROVIGIL [Suspect]
     Indication: DRUG USE FOR UNKNOWN INDICATION
     Dosage: 200MG PER DAY
     Route: 048
     Dates: start: 20040401
  3. DOXYCYCLINE [Concomitant]

REACTIONS (3)
  - DRUG INTERACTION [None]
  - PHOTOPHOBIA [None]
  - VITREOUS FLOATERS [None]
